FAERS Safety Report 5758141-2 (Version None)
Quarter: 2008Q2

REPORT INFORMATION
  Report Type: 
  Country: None (occurrence: None)
  Receive Date: 20080602
  Receipt Date: 20080602
  Transmission Date: 20081010
  Serious: Yes (Hospitalization)
  Sender: FDA-Public Use
  Company Number: None

PATIENT
  Age: 61 Year
  Sex: Male
  Weight: 87 kg

DRUGS (3)
  1. OMEPRAZOLE [Suspect]
     Indication: GASTROOESOPHAGEAL REFLUX DISEASE
     Dosage: 20 MG EVERY DAY PO
     Route: 048
     Dates: start: 20080419, end: 20080424
  2. CLOPIDOGREL [Suspect]
     Indication: CARDIAC DISORDER
     Dosage: 75 MG EVERY DAY PO
     Route: 048
     Dates: start: 20080421
  3. CLOPIDOGREL [Suspect]
     Indication: STENT PLACEMENT
     Dosage: 75 MG EVERY DAY PO
     Route: 048
     Dates: start: 20080421

REACTIONS (6)
  - ACUTE MYOCARDIAL INFARCTION [None]
  - BUNDLE BRANCH BLOCK [None]
  - CORONARY ARTERY REOCCLUSION [None]
  - DRUG INTERACTION [None]
  - ELECTROCARDIOGRAM ABNORMAL [None]
  - THROMBOSIS [None]
